FAERS Safety Report 19176147 (Version 4)
Quarter: 2021Q3

REPORT INFORMATION
  Report Type: Spontaneous
  Country: CN (occurrence: CN)
  Receive Date: 20210424
  Receipt Date: 20210705
  Transmission Date: 20211014
  Serious: Yes (Other)
  Sender: FDA-Public Use
  Company Number: NVSC2021CN086851

PATIENT
  Age: 43 Year
  Sex: Female

DRUGS (1)
  1. DIOVAN [Suspect]
     Active Substance: VALSARTAN
     Indication: HYPERTENSION
     Dosage: 1 DF, QD,ONE TABLET A DAY (FOR ALMOST A MONTH)
     Route: 048
     Dates: start: 202103, end: 202105

REACTIONS (4)
  - Blood pressure increased [Unknown]
  - Dizziness [Recovering/Resolving]
  - Drug ineffective [Unknown]
  - Head titubation [Recovered/Resolved]

NARRATIVE: CASE EVENT DATE: 20210413
